FAERS Safety Report 23478548 (Version 1)
Quarter: 2024Q1

REPORT INFORMATION
  Report Type: Report from Study
  Country: US (occurrence: US)
  Receive Date: 20240205
  Receipt Date: 20240205
  Transmission Date: 20240409
  Serious: No
  Sender: FDA-Public Use
  Company Number: US-EXELIXIS-CABO-23068606

PATIENT
  Sex: Female
  Weight: 124.08 kg

DRUGS (2)
  1. CABOMETYX [Suspect]
     Active Substance: CABOZANTINIB S-MALATE
     Indication: Renal cancer
     Dosage: 60 MG, QD (20 MG, TAKE 3 TABLETS BY MOUTH ONCE DAILY))
     Route: 048
     Dates: start: 20230826
  2. CABOMETYX [Suspect]
     Active Substance: CABOZANTINIB S-MALATE
     Dosage: 60 MG EVERY THIRD DAY, AND THEN TAKING 40 MILLIGRAMS DAILY EVERY DAY
     Route: 048

REACTIONS (5)
  - Diarrhoea [Unknown]
  - Nasal congestion [Unknown]
  - Lung disorder [Unknown]
  - Inappropriate schedule of product administration [Unknown]
  - Product prescribing error [Unknown]
